FAERS Safety Report 9088529 (Version 1)
Quarter: 2013Q1

REPORT INFORMATION
  Report Type: Report from Study
  Country: US (occurrence: US)
  Receive Date: 20130201
  Receipt Date: 20130201
  Transmission Date: 20140127
  Serious: No
  Sender: FDA-Public Use
  Company Number: US-ABBOTT-12P-163-1023913-00

PATIENT
  Age: 41 None
  Sex: Female
  Weight: 68.1 kg

DRUGS (6)
  1. HUMIRA [Suspect]
     Indication: RHEUMATOID ARTHRITIS
     Dates: start: 2007
  2. NEXIUM [Concomitant]
     Indication: GASTROOESOPHAGEAL REFLUX DISEASE
  3. SYNTHROID [Concomitant]
     Indication: THYROID DISORDER
  4. WELLBUTRIN [Concomitant]
     Indication: DEPRESSION
  5. LUNESTA [Concomitant]
     Indication: INSOMNIA
  6. ZYRTEC [Concomitant]
     Indication: HYPERSENSITIVITY

REACTIONS (4)
  - Incorrect dose administered [Unknown]
  - Injection site pain [Recovered/Resolved]
  - Injection site pain [Not Recovered/Not Resolved]
  - Injection site vesicles [Unknown]
